FAERS Safety Report 24731876 (Version 1)
Quarter: 2024Q4

REPORT INFORMATION
  Report Type: Spontaneous
  Country: JP (occurrence: JP)
  Receive Date: 20241213
  Receipt Date: 20241213
  Transmission Date: 20250115
  Serious: Yes (Death, Other)
  Sender: ASTELLAS
  Company Number: JP-ASTELLAS-2024-AER-021124

PATIENT
  Age: 8 Decade
  Sex: Male

DRUGS (3)
  1. VYLOY [Suspect]
     Active Substance: ZOLBETUXIMAB-CLZB
     Indication: Gastric cancer
     Route: 042
     Dates: start: 20241101, end: 20241101
  2. CAPECITABINE [Concomitant]
     Active Substance: CAPECITABINE
     Indication: Product used for unknown indication
     Route: 065
     Dates: start: 20241010
  3. OXALIPLATIN [Concomitant]
     Active Substance: OXALIPLATIN
     Indication: Product used for unknown indication
     Route: 065
     Dates: start: 20241010

REACTIONS (5)
  - Intestinal ischaemia [Fatal]
  - Dehydration [Unknown]
  - Diarrhoea [Unknown]
  - Nausea [Unknown]
  - Blood pressure decreased [Unknown]

NARRATIVE: CASE EVENT DATE: 20241113
